FAERS Safety Report 9365647 (Version 4)
Quarter: 2014Q2

REPORT INFORMATION
  Report Type: Spontaneous
  Country: US (occurrence: US)
  Receive Date: 20130625
  Receipt Date: 20140425
  Transmission Date: 20141212
  Serious: Yes (Other)
  Sender: FDA-Public Use
  Company Number: US-MERCK-1306USA010149

PATIENT
  Sex: Male

DRUGS (1)
  1. JANUVIA [Suspect]
     Indication: DIABETES MELLITUS
     Dosage: 100 MG PILL PER DAY
     Route: 048

REACTIONS (3)
  - Prostate cancer metastatic [Unknown]
  - Lymphadenectomy [Unknown]
  - Metastases to lymph nodes [Unknown]
